FAERS Safety Report 9785710 (Version 2)
Quarter: 2013Q4

REPORT INFORMATION
  Report Type: Spontaneous
  Country: US (occurrence: US)
  Receive Date: 20131227
  Receipt Date: 20131227
  Transmission Date: 20140711
  Serious: Yes (Other)
  Sender: FDA-Public Use
  Company Number: US-ASTRAZENECA-2011SE10253

PATIENT
  Age: 61 Year
  Sex: Female
  Weight: 74.8 kg

DRUGS (11)
  1. NEXIUM [Suspect]
     Indication: HIATUS HERNIA
     Route: 048
     Dates: start: 201207, end: 201207
  2. NEXIUM [Suspect]
     Indication: GASTROOESOPHAGEAL REFLUX DISEASE
     Route: 048
     Dates: start: 201207, end: 201207
  3. NEXIUM [Suspect]
     Indication: HIATUS HERNIA
     Route: 048
  4. NEXIUM [Suspect]
     Indication: GASTROOESOPHAGEAL REFLUX DISEASE
     Route: 048
  5. NEXIUM [Suspect]
     Indication: HIATUS HERNIA
     Route: 048
  6. NEXIUM [Suspect]
     Indication: GASTROOESOPHAGEAL REFLUX DISEASE
     Route: 048
  7. PRILOSEC [Suspect]
     Indication: HIATUS HERNIA
     Dosage: DAILY
     Route: 048
     Dates: start: 2004
  8. PRILOSEC [Suspect]
     Indication: GASTROOESOPHAGEAL REFLUX DISEASE
     Dosage: DAILY
     Route: 048
     Dates: start: 2004
  9. ESTRADIOL [Concomitant]
     Indication: HYSTERECTOMY
     Route: 048
     Dates: start: 2005
  10. DUFOLAX [Concomitant]
  11. DEXILANT [Concomitant]

REACTIONS (10)
  - Uterine cancer [Unknown]
  - Gastrooesophageal reflux disease [Unknown]
  - Dyspepsia [Unknown]
  - Gastrooesophageal reflux disease [Unknown]
  - Hiccups [Unknown]
  - Eructation [Unknown]
  - Flatulence [Recovering/Resolving]
  - Intentional drug misuse [Unknown]
  - Off label use [Unknown]
  - Drug ineffective [Unknown]
